FAERS Safety Report 5748047-7 (Version None)
Quarter: 2008Q2

REPORT INFORMATION
  Report Type: 
  Country: None (occurrence: None)
  Receive Date: 20080523
  Receipt Date: 20080512
  Transmission Date: 20081010
  Serious: Yes (Hospitalization, Other)
  Sender: FDA-Public Use
  Company Number: US-ELI_LILLY_AND_COMPANY-US200805002468

PATIENT
  Age: 37 Year
  Sex: Female

DRUGS (6)
  1. PROZAC WEEKLY [Suspect]
     Dosage: 90 MG, 2/W
     Dates: start: 20060101
  2. PROZAC WEEKLY [Suspect]
     Dosage: 90 MG, WEEKLY (1/W)
  3. SYNTHROID [Concomitant]
  4. DETROL [Concomitant]
  5. NEXIUM [Concomitant]
  6. ALLEGRA [Concomitant]
     Dates: end: 20080513

REACTIONS (2)
  - LAPAROSCOPIC SURGERY [None]
  - PHARMACEUTICAL PRODUCT COMPLAINT [None]
